FAERS Safety Report 12783147 (Version 1)
Quarter: 2016Q3

REPORT INFORMATION
  Report Type: Spontaneous
  Country: US (occurrence: US)
  Receive Date: 20160927
  Receipt Date: 20160927
  Transmission Date: 20161109
  Serious: Yes (Other)
  Sender: FDA-Public Use
  Company Number: US-BEH-SAGL/00/18/USA

PATIENT
  Age: 47 Year
  Sex: Female

DRUGS (15)
  1. SANDOGLOBULIN [Suspect]
     Active Substance: HUMAN IMMUNOGLOBULIN G
     Indication: IMMUNODEFICIENCY
     Dosage: DAILY DOSE QUANTITY: 21, DAILY DOSE UNIT: G
     Route: 042
     Dates: start: 19960328, end: 19981008
  2. CLARITIN [Concomitant]
     Active Substance: LORATADINE
  3. ELAVIL [Concomitant]
     Active Substance: AMITRIPTYLINE HYDROCHLORIDE
  4. SEREVENT DISKUS [Concomitant]
     Active Substance: SALMETEROL XINAFOATE
  5. SINGULAIR [Concomitant]
     Active Substance: MONTELUKAST SODIUM
  6. NASONEX [Concomitant]
     Active Substance: MOMETASONE FUROATE
  7. PROVENTIL TABLET [Concomitant]
  8. PANGLOBULIN [Suspect]
     Active Substance: HUMAN IMMUNOGLOBULIN G
     Indication: IMMUNODEFICIENCY
     Dosage: DAILY DOSE QUANTITY: 21, DAILY DOSE UNIT: G
     Route: 042
     Dates: start: 19981112, end: 20000203
  9. PREMARIN [Concomitant]
     Active Substance: ESTROGENS, CONJUGATED
  10. MIDRIN [Concomitant]
     Active Substance: ACETAMINOPHEN\DICHLORALPHENAZONE\ISOMETHEPTENE
  11. INTAL [Concomitant]
     Active Substance: CROMOLYN SODIUM
  12. GAMMAGLOBULIN [Suspect]
     Active Substance: HUMAN IMMUNOGLOBULIN G
  13. FLOVENT [Concomitant]
     Active Substance: FLUTICASONE PROPIONATE
  14. PREDNISONE. [Concomitant]
     Active Substance: PREDNISONE
  15. GAMMAR-P IM [Suspect]
     Active Substance: HUMAN IMMUNOGLOBULIN G
     Indication: IMMUNODEFICIENCY
     Dosage: DAILY DOSE QUANTITY: 5, DAILY DOSE UNIT: G
     Route: 042
     Dates: start: 19960311, end: 19960311

REACTIONS (20)
  - Conversion disorder [Unknown]
  - Arthralgia [Unknown]
  - Emotional disorder [Unknown]
  - Balance disorder [Unknown]
  - Confusional state [Unknown]
  - Creutzfeldt-Jakob disease [Unknown]
  - Depression [Unknown]
  - Headache [Unknown]
  - Seizure [Unknown]
  - Tremor [Unknown]
  - Dysphonia [Unknown]
  - Photophobia [Unknown]
  - Syncope [Unknown]
  - Loss of consciousness [Unknown]
  - Fatigue [Unknown]
  - Disorientation [Unknown]
  - Agoraphobia [Unknown]
  - Hemiparesis [Unknown]
  - Myalgia [Unknown]
  - Memory impairment [Unknown]

NARRATIVE: CASE EVENT DATE: 1995
